FAERS Safety Report 8255041-3 (Version None)
Quarter: 2012Q1

REPORT INFORMATION
  Report Type: 
  Country: None (occurrence: None)
  Receive Date: 20120329
  Receipt Date: 20120315
  Transmission Date: 20120608
  Serious: Yes (Life-Threatening, Hospitalization)
  Sender: FDA-Public Use
  Company Number: 2012SP016383

PATIENT
  Age: 57 Year
  Sex: Female
  Weight: 63.5 kg

DRUGS (4)
  1. VORINOSTAT [Suspect]
     Indication: GLIOBLASTOMA MULTIFORME
     Dosage: 4500 MG; PO
     Route: 048
     Dates: end: 20120224
  2. TEMOZOLOMIDE [Suspect]
     Indication: GLIOBLASTOMA MULTIFORME
     Dosage: 2160 MG
     Dates: start: 20120206, end: 20120223
  3. DEXAMETHASONE TAB [Suspect]
  4. DAPSONE [Suspect]

REACTIONS (10)
  - OCCULT BLOOD POSITIVE [None]
  - HYPOXIA [None]
  - SMALL INTESTINAL PERFORATION [None]
  - DIVERTICULAR PERFORATION [None]
  - GASTROINTESTINAL HAEMORRHAGE [None]
  - ABSCESS [None]
  - PULMONARY EMBOLISM [None]
  - ANAEMIA [None]
  - LYMPHOCYTE COUNT DECREASED [None]
  - ENTERITIS INFECTIOUS [None]
